FAERS Safety Report 7774298-6 (Version None)
Quarter: 2011Q3

REPORT INFORMATION
  Report Type: 
  Country: None (occurrence: None)
  Receive Date: 20110921
  Receipt Date: 20110728
  Transmission Date: 20111222
  Serious: Yes (Hospitalization)
  Sender: FDA-Public Use
  Company Number: UTC-009090

PATIENT
  Age: 72 Year
  Sex: Female
  Weight: 74.09 kg

DRUGS (6)
  1. DIURETICS (DIURETICS) [Concomitant]
  2. TYVASO [Suspect]
     Indication: PULMONARY HYPERTENSION
     Dosage: 192 MCG (48 MCG, 4 IN 1 D), INHALATION
     Route: 055
     Dates: start: 20110428
  3. TYVASO [Suspect]
     Indication: SYSTEMIC SCLEROSIS
     Dosage: 192 MCG (48 MCG, 4 IN 1 D), INHALATION
     Route: 055
     Dates: start: 20110428
  4. REVATIO [Concomitant]
  5. COUMADIN [Suspect]
  6. TRACLEER [Concomitant]

REACTIONS (1)
  - EPISTAXIS [None]
